FAERS Safety Report 25077234 (Version 2)
Quarter: 2025Q3

REPORT INFORMATION
  Report Type: Spontaneous
  Country: EU (occurrence: EU)
  Receive Date: 20250314
  Receipt Date: 20250718
  Transmission Date: 20251021
  Serious: Yes (Other)
  Sender: AUROBINDO
  Company Number: EU-ELI_LILLY_AND_COMPANY-ES202502012619

PATIENT
  Age: 56 Year
  Sex: Female

DRUGS (2)
  1. LETROZOLE [Suspect]
     Active Substance: LETROZOLE
     Indication: Product used for unknown indication
     Route: 065
  2. ABEMACICLIB [Suspect]
     Active Substance: ABEMACICLIB
     Indication: Breast cancer
     Route: 048
     Dates: start: 20240701

REACTIONS (10)
  - Thrombosis [Recovering/Resolving]
  - Stress [Unknown]
  - Constipation [Unknown]
  - Thyroid disorder [Recovering/Resolving]
  - Peripheral swelling [Recovering/Resolving]
  - Visual impairment [Recovered/Resolved]
  - Blood cholesterol increased [Recovering/Resolving]
  - Diarrhoea [Recovered/Resolved]
  - Fatigue [Recovering/Resolving]
  - Weight loss poor [Recovering/Resolving]

NARRATIVE: CASE EVENT DATE: 20250107
